FAERS Safety Report 25236549 (Version 1)
Quarter: 2025Q2

REPORT INFORMATION
  Report Type: Spontaneous
  Country: US (occurrence: US)
  Receive Date: 20250424
  Receipt Date: 20250424
  Transmission Date: 20250716
  Serious: Yes (Hospitalization, Other)
  Sender: BAXTER
  Company Number: US-BAXTER-2025BAX014428

PATIENT
  Age: 21 Year
  Sex: Female

DRUGS (2)
  1. CEFAZOLIN [Suspect]
     Active Substance: CEFAZOLIN
     Indication: Antibiotic therapy
     Route: 065
  2. CEFAZOLIN [Suspect]
     Active Substance: CEFAZOLIN
     Indication: Preoperative care

REACTIONS (12)
  - Drug-induced liver injury [Recovered/Resolved]
  - Liver function test increased [Recovered/Resolved]
  - Cholestasis [Recovered/Resolved]
  - Hepatic necrosis [Recovered/Resolved]
  - Erythema multiforme [Recovered/Resolved]
  - Rash [Recovered/Resolved]
  - Rash pruritic [Recovered/Resolved]
  - Rash erythematous [Recovered/Resolved]
  - Rash macular [Recovered/Resolved]
  - Target skin lesion [Recovered/Resolved]
  - Dermatitis [Recovered/Resolved]
  - Dry eye [Recovered/Resolved]
